FAERS Safety Report 11011212 (Version 2)
Quarter: 2015Q2

REPORT INFORMATION
  Report Type: Spontaneous
  Country: US (occurrence: US)
  Receive Date: 20150410
  Receipt Date: 20150623
  Transmission Date: 20150821
  Serious: No
  Sender: FDA-Public Use
  Company Number: US-TEVA-554473USA

PATIENT
  Age: 28 Year
  Sex: Female
  Weight: 84.9 kg

DRUGS (2)
  1. ZOLOFT [Concomitant]
     Active Substance: SERTRALINE HYDROCHLORIDE
     Indication: ANXIETY
  2. PARAGARD T 380A [Suspect]
     Active Substance: COPPER
     Indication: CONTRACEPTION
     Route: 015
     Dates: start: 20150401, end: 20150409

REACTIONS (5)
  - Increased appetite [Unknown]
  - Acne [Unknown]
  - Anxiety [Unknown]
  - Depression [Unknown]
  - Alopecia [Unknown]

NARRATIVE: CASE EVENT DATE: 20150301
